FAERS Safety Report 6096019-8 (Version None)
Quarter: 2009Q1

REPORT INFORMATION
  Report Type: 
  Country: None (occurrence: None)
  Receive Date: 20090227
  Receipt Date: 20080811
  Transmission Date: 20090719
  Serious: No
  Sender: FDA-Public Use
  Company Number: A0741992A

PATIENT
  Age: 3 Year
  Sex: Male

DRUGS (8)
  1. LAMICTAL [Suspect]
     Dosage: 25MG PER DAY
     Route: 048
     Dates: start: 20080728
  2. LAMICTAL [Concomitant]
     Route: 048
     Dates: start: 20080212, end: 20080611
  3. RISPERDAL [Concomitant]
     Dates: start: 20070801
  4. UNSPECIFIED MEDICATION [Concomitant]
  5. NYSTATIN [Concomitant]
  6. RANITIDINE SYRUP [Concomitant]
     Dates: start: 20070401
  7. KEPPRA [Concomitant]
     Dates: end: 20080601
  8. LAMICTAL [Concomitant]
     Dosage: 25MG PER DAY
     Route: 048
     Dates: start: 20080612, end: 20080727

REACTIONS (2)
  - SLEEP DISORDER [None]
  - SLEEP TERROR [None]
